FAERS Safety Report 9494322 (Version 3)
Quarter: 2014Q4

REPORT INFORMATION
  Report Type: Spontaneous
  Country: US (occurrence: None)
  Receive Date: 20130828
  Receipt Date: 20141020
  Transmission Date: 20150529
  Serious: Yes (Other)
  Sender: FDA-Public Use
  Company Number: KAD201308-001053

PATIENT
  Age: 56 Year
  Sex: Female

DRUGS (3)
  1. ANASTROZOLE (ANASTROZOLE) [Suspect]
     Active Substance: ANASTROZOLE
     Indication: BREAST CANCER
  2. CARBOPLATIN (CARBOPLATIN) [Suspect]
     Active Substance: CARBOPLATIN
  3. PACLITAXEL (PACLITAXEL) [Suspect]
     Active Substance: PACLITAXEL

REACTIONS (3)
  - Visual acuity reduced [None]
  - Eye swelling [None]
  - Papilloedema [None]
